FAERS Safety Report 11381390 (Version 1)
Quarter: 2015Q3

REPORT INFORMATION
  Report Type: Spontaneous
  Country: US (occurrence: US)
  Receive Date: 20150814
  Receipt Date: 20150814
  Transmission Date: 20151125
  Serious: No
  Sender: FDA-Public Use
  Company Number: US-JNJFOC-20150801900

PATIENT
  Sex: Female
  Weight: 71.67 kg

DRUGS (2)
  1. UNSPECIFIED J+J PRODUCT [Concomitant]
     Indication: MUSCLE SPASMS
     Route: 048
  2. DURAGESIC [Suspect]
     Active Substance: FENTANYL
     Indication: PAIN
     Route: 062
     Dates: start: 2013

REACTIONS (5)
  - Wrong technique in product usage process [Unknown]
  - Drug dose omission [Unknown]
  - Product adhesion issue [Unknown]
  - Application site exfoliation [Unknown]
  - Exposure during pregnancy [Unknown]

NARRATIVE: CASE EVENT DATE: 2013
